FAERS Safety Report 5749721-9 (Version None)
Quarter: 2008Q2

REPORT INFORMATION
  Report Type: 
  Country: None (occurrence: None)
  Receive Date: 20080521
  Receipt Date: 20080521
  Transmission Date: 20081010
  Serious: Yes (Hospitalization)
  Sender: FDA-Public Use
  Company Number: None

PATIENT
  Age: 8 Year
  Sex: Male
  Weight: 17 kg

DRUGS (1)
  1. METHOTREXATE [Suspect]
     Indication: HYPERSENSITIVITY
     Dosage: 1 GM/M2 24 HR PR
     Dates: start: 20080101

REACTIONS (8)
  - BURNING SENSATION [None]
  - DRUG TOXICITY [None]
  - ERYTHEMA [None]
  - HYPERSENSITIVITY [None]
  - MUCOSAL INFLAMMATION [None]
  - PRURITUS GENERALISED [None]
  - RENAL IMPAIRMENT [None]
  - SKIN EXFOLIATION [None]
